FAERS Safety Report 13948834 (Version 2)
Quarter: 2018Q3

REPORT INFORMATION
  Report Type: Report from Study
  Country: JP (occurrence: JP)
  Receive Date: 20170908
  Receipt Date: 20180713
  Transmission Date: 20181010
  Serious: Yes (Death)
  Sender: FDA-Public Use
  Company Number: JP-JNJFOC-20170905620

PATIENT
  Age: 96 Year
  Sex: Female
  Weight: 37.6 kg

DRUGS (12)
  1. SEROQUEL [Concomitant]
     Active Substance: QUETIAPINE FUMARATE
     Indication: DEMENTIA
     Route: 048
  2. RIVAROXABAN [Suspect]
     Active Substance: RIVAROXABAN
     Indication: THROMBOSIS PROPHYLAXIS
     Route: 048
     Dates: start: 20130520, end: 20161224
  3. METILDIGOXIN [Concomitant]
     Active Substance: METILDIGOXIN
     Route: 048
  4. NEXIUM [Concomitant]
     Active Substance: ESOMEPRAZOLE MAGNESIUM
     Route: 065
  5. AZOSEMIDE [Concomitant]
     Active Substance: AZOSEMIDE
     Indication: HYPOKALAEMIA
     Route: 048
  6. VERAPAMIL HYDROCHLORIDE. [Concomitant]
     Active Substance: VERAPAMIL HYDROCHLORIDE
     Route: 048
  7. CANDESARTAN CILEXETIL. [Concomitant]
     Active Substance: CANDESARTAN CILEXETIL
     Route: 048
  8. URSODEOXYCHOLIC ACID [Concomitant]
     Active Substance: URSODIOL
     Indication: BILE DUCT STONE
     Route: 048
  9. RIVAROXABAN [Suspect]
     Active Substance: RIVAROXABAN
     Indication: ATRIAL FIBRILLATION
     Route: 048
     Dates: start: 20130520, end: 20161224
  10. RIVAROXABAN [Suspect]
     Active Substance: RIVAROXABAN
     Indication: CEREBROVASCULAR ACCIDENT PROPHYLAXIS
     Route: 048
     Dates: start: 20130520, end: 20161224
  11. POTASSIUM ACETATE. [Concomitant]
     Active Substance: POTASSIUM ACETATE
     Route: 048
  12. URSODEOXYCHOLIC ACID [Concomitant]
     Active Substance: URSODIOL
     Indication: HEPATIC FUNCTION ABNORMAL
     Route: 048

REACTIONS (3)
  - Cardiac failure [Fatal]
  - Gastrointestinal haemorrhage [Fatal]
  - Radius fracture [Recovered/Resolved with Sequelae]

NARRATIVE: CASE EVENT DATE: 20161104
